FAERS Safety Report 5026231-8 (Version None)
Quarter: 2006Q2

REPORT INFORMATION
  Report Type: 
  Country: None (occurrence: None)
  Receive Date: 20060608
  Receipt Date: 20060606
  Transmission Date: 20061013
  Serious: Yes (Hospitalization, Other)
  Sender: FDA-Public Use
  Company Number: ITWYE649924MAY06

PATIENT
  Age: 59 Year
  Sex: Female

DRUGS (16)
  1. RAPAMUNE [Suspect]
     Indication: PROPHYLAXIS AGAINST TRANSPLANT REJECTION
     Dosage: 6 G 1X PER 1 DAY ORAL; SEE IMAGE
     Route: 048
     Dates: start: 20060330, end: 20060330
  2. RAPAMUNE [Suspect]
     Indication: PROPHYLAXIS AGAINST TRANSPLANT REJECTION
     Dosage: 6 G 1X PER 1 DAY ORAL; SEE IMAGE
     Route: 048
     Dates: start: 20060331, end: 20060413
  3. RAPAMUNE [Suspect]
     Indication: PROPHYLAXIS AGAINST TRANSPLANT REJECTION
     Dosage: 6 G 1X PER 1 DAY ORAL; SEE IMAGE
     Route: 048
     Dates: start: 20060414, end: 20060428
  4. RAPAMUNE [Suspect]
     Indication: PROPHYLAXIS AGAINST TRANSPLANT REJECTION
     Dosage: 6 G 1X PER 1 DAY ORAL; SEE IMAGE
     Route: 048
     Dates: start: 20060429, end: 20060605
  5. RAPAMUNE [Suspect]
     Indication: PROPHYLAXIS AGAINST TRANSPLANT REJECTION
     Dosage: 6 G 1X PER 1 DAY ORAL; SEE IMAGE
     Route: 048
     Dates: start: 20060606
  6. CYCLOSPORINE [Concomitant]
  7. PREDNISONE TAB [Concomitant]
  8. RANITIDINE [Concomitant]
  9. SULFAMETHOXAZOLE MED TRIMETOPRIM MITE (SULFAMETHOXAZOLE/TRIMETHOPRIM) [Concomitant]
  10. CARVEDILOL [Concomitant]
  11. ERYTHROPOIETIN (ERYTHROPOIETIN) [Concomitant]
  12. DORZOLAMIDE/TIMOLOL (DORZOLAMIDE/TIMOLOL) [Concomitant]
  13. LUMIGAN [Concomitant]
  14. AMLODIPINE [Concomitant]
  15. FLUVASTATIN (FLUVASTATIN) [Concomitant]
  16. FUROSEMIDE [Concomitant]

REACTIONS (3)
  - DIABETES MELLITUS [None]
  - KIDNEY TRANSPLANT REJECTION [None]
  - NEPHROPATHY TOXIC [None]
